FAERS Safety Report 4597492-4 (Version None)
Quarter: 2005Q1

REPORT INFORMATION
  Report Type: 
  Country: None (occurrence: None)
  Receive Date: 20050303
  Receipt Date: 20050222
  Transmission Date: 20050727
  Serious: Yes (Life-Threatening, Hospitalization)
  Sender: FDA-Public Use
  Company Number: PL-ROCHE-396081

PATIENT
  Age: 20 Year
  Sex: Female

DRUGS (4)
  1. NAPROXEN [Suspect]
     Indication: DRUG USE FOR UNKNOWN INDICATION
     Route: 065
  2. PARACETAMOL [Suspect]
     Indication: DRUG USE FOR UNKNOWN INDICATION
     Route: 065
  3. FERROUS SULFATE TAB [Suspect]
     Indication: DRUG USE FOR UNKNOWN INDICATION
     Route: 065
  4. BENZODIAZEPINES [Suspect]
     Indication: DRUG USE FOR UNKNOWN INDICATION
     Route: 065

REACTIONS (4)
  - COMA [None]
  - DRUG TOXICITY [None]
  - HEPATIC FAILURE [None]
  - HEPATOCELLULAR DAMAGE [None]
